FAERS Safety Report 4304558-2 (Version None)
Quarter: 2004Q1

REPORT INFORMATION
  Report Type: 
  Country: None (occurrence: None)
  Receive Date: 20040225
  Receipt Date: 20040225
  Transmission Date: 20041129
  Serious: Yes (Hospitalization)
  Sender: FDA-Public Use
  Company Number: None

PATIENT
  Age: 84 Year
  Sex: Male

DRUGS (2)
  1. GATIFLOXACIN 400 MG BRISTOL-MYERS SQUIBB [Suspect]
     Indication: URINARY TRACT INFECTION
     Dosage: 400 MG PO DAILY
     Route: 048
     Dates: start: 20040219
  2. GLYBURIDE [Concomitant]

REACTIONS (1)
  - HYPOGLYCAEMIA [None]
